FAERS Safety Report 15541144 (Version 1)
Quarter: 2018Q4

REPORT INFORMATION
  Report Type: Spontaneous
  Country: US (occurrence: US)
  Receive Date: 20181017
  Receipt Date: 20181017
  Transmission Date: 20190205
  Serious: No
  Sender: FDA-Public Use
  Company Number: None

PATIENT
  Age: 77 Year
  Sex: Male

DRUGS (1)
  1. ESBRIET [Suspect]
     Active Substance: PIRFENIDONE
     Indication: IDIOPATHIC PULMONARY FIBROSIS
     Dates: start: 201805

REACTIONS (5)
  - Weight decreased [None]
  - Nausea [None]
  - Therapy cessation [None]
  - Decreased appetite [None]
  - Flatulence [None]

NARRATIVE: CASE EVENT DATE: 20181015
